FAERS Safety Report 10884469 (Version 3)
Quarter: 2016Q2

REPORT INFORMATION
  Report Type: Spontaneous
  Country: US (occurrence: US)
  Receive Date: 20150304
  Receipt Date: 20160607
  Transmission Date: 20160815
  Serious: Yes (Other)
  Sender: FDA-Public Use
  Company Number: US-JNJFOC-20150212924

PATIENT
  Sex: Male

DRUGS (6)
  1. INVEGA [Suspect]
     Active Substance: PALIPERIDONE
     Indication: BIPOLAR DISORDER
     Dosage: EXTENDED RELEASE 24 HOUR TABLET
     Route: 048
     Dates: start: 2011, end: 201410
  2. RISPERDAL [Suspect]
     Active Substance: RISPERIDONE
     Indication: ATTENTION DEFICIT/HYPERACTIVITY DISORDER
     Dosage: 0.5 TO 1 MG
     Route: 048
     Dates: start: 2007
  3. INVEGA [Suspect]
     Active Substance: PALIPERIDONE
     Indication: ATTENTION DEFICIT/HYPERACTIVITY DISORDER
     Dosage: EXTENDED RELEASE 24 HOUR TABLET
     Route: 048
     Dates: start: 2011, end: 201410
  4. RISPERDAL [Suspect]
     Active Substance: RISPERIDONE
     Indication: ATTENTION DEFICIT/HYPERACTIVITY DISORDER
     Dosage: 0.5 TO 1 MG
     Route: 048
     Dates: start: 2003, end: 2006
  5. RISPERDAL [Suspect]
     Active Substance: RISPERIDONE
     Indication: BIPOLAR DISORDER
     Dosage: 0.5 TO 1 MG
     Route: 048
     Dates: start: 2003, end: 2006
  6. RISPERDAL [Suspect]
     Active Substance: RISPERIDONE
     Indication: BIPOLAR DISORDER
     Dosage: 0.5 TO 1 MG
     Route: 048
     Dates: start: 2007

REACTIONS (5)
  - Abnormal weight gain [Unknown]
  - Hypogonadism [Unknown]
  - Hyperprolactinaemia [Unknown]
  - Respiratory disorder [Unknown]
  - Gynaecomastia [Unknown]

NARRATIVE: CASE EVENT DATE: 2005
